FAERS Safety Report 9661987 (Version 2)
Quarter: 2013Q4

REPORT INFORMATION
  Report Type: Spontaneous
  Country: DE (occurrence: None)
  Receive Date: 20131030
  Receipt Date: 20131115
  Transmission Date: 20140711
  Serious: Yes (Hospitalization, Other)
  Sender: FDA-Public Use
  Company Number: 1310-1345

PATIENT
  Age: 85 Year
  Sex: Male

DRUGS (1)
  1. EYLEA [Suspect]
     Indication: AGE-RELATED MACULAR DEGENERATION
     Dates: start: 20121221

REACTIONS (6)
  - Blindness unilateral [None]
  - Eye infection [None]
  - Eye pain [None]
  - Vitrectomy [None]
  - Intraocular pressure decreased [None]
  - Endophthalmitis [None]
